FAERS Safety Report 4407226-1 (Version None)
Quarter: 2004Q3

REPORT INFORMATION
  Report Type: 
  Country: None (occurrence: None)
  Receive Date: 20040721
  Receipt Date: 20040714
  Transmission Date: 20050211
  Serious: Yes (Death)
  Sender: FDA-Public Use
  Company Number: KII-2000-0012258

PATIENT
  Age: 58 Year
  Sex: Female

DRUGS (1)
  1. OXYCODONE HCL [Suspect]
     Indication: CANCER PAIN

REACTIONS (2)
  - BREAST CANCER METASTATIC [None]
  - CONDITION AGGRAVATED [None]
